FAERS Safety Report 12173234 (Version 5)
Quarter: 2016Q3

REPORT INFORMATION
  Report Type: Spontaneous
  Country: IT (occurrence: IT)
  Receive Date: 20160311
  Receipt Date: 20160727
  Transmission Date: 20161109
  Serious: Yes (Other)
  Sender: FDA-Public Use
  Company Number: PHHY2016IT031105

PATIENT
  Age: 25 Year
  Sex: Male

DRUGS (2)
  1. CICLOSPORIN [Suspect]
     Active Substance: CYCLOSPORINE
     Indication: BEHCET^S SYNDROME
     Dosage: 5 MG/KG, QD
     Route: 065
     Dates: start: 200107, end: 200201
  2. TRIAMCINOLONE [Concomitant]
     Active Substance: TRIAMCINOLONE
     Indication: UVEITIS
     Dosage: 40 MG, UNK
     Route: 047
     Dates: start: 199902

REACTIONS (6)
  - Proteinuria [Unknown]
  - Haemoglobinuria [Unknown]
  - Product use issue [Unknown]
  - Renal impairment [Unknown]
  - Nephrolithiasis [Unknown]
  - Nephropathy toxic [Unknown]
